FAERS Safety Report 16903856 (Version 1)
Quarter: 2019Q4

REPORT INFORMATION
  Report Type: Spontaneous
  Country: IT (occurrence: IT)
  Receive Date: 20191010
  Receipt Date: 20191010
  Transmission Date: 20200122
  Serious: Yes (Other)
  Sender: FDA-Public Use
  Company Number: IT-ROCHE-2431333

PATIENT
  Age: 14 Year
  Sex: Female
  Weight: 68 kg

DRUGS (3)
  1. RIVOTRIL [Suspect]
     Active Substance: CLONAZEPAM
     Indication: EPILEPSY
     Dosage: ON 09/SEP/2019, MOST RECENT DOSE
     Route: 048
     Dates: start: 20190101
  2. KEPPRA [Suspect]
     Active Substance: LEVETIRACETAM
     Indication: EPILEPSY
     Dosage: ON 09/SEP/2019, MOST RECENT DOSE
     Route: 048
     Dates: start: 20190101
  3. PHENOBARBITAL. [Suspect]
     Active Substance: PHENOBARBITAL
     Indication: EPILEPSY
     Dosage: ON 09/SEP/2019, MOST RECENT DOSE
     Route: 048
     Dates: start: 20190101

REACTIONS (2)
  - Seizure [Recovering/Resolving]
  - Drug ineffective [Unknown]

NARRATIVE: CASE EVENT DATE: 20190909
